FAERS Safety Report 5086310-6 (Version None)
Quarter: 2006Q3

REPORT INFORMATION
  Report Type: 
  Country: None (occurrence: None)
  Receive Date: 20060821
  Receipt Date: 20060821
  Transmission Date: 20061208
  Serious: Yes (Other)
  Sender: FDA-Public Use
  Company Number: None

PATIENT
  Age: 42 Year
  Sex: Female
  Weight: 90.2658 kg

DRUGS (2)
  1. LEXAPRO [Suspect]
     Indication: ANXIETY
     Dosage: 10 ONE BY MOUTH OD PO
     Route: 048
     Dates: start: 20060415, end: 20060802
  2. LEXAPRO [Suspect]
     Indication: DEPRESSION
     Dosage: 10 ONE BY MOUTH OD PO
     Route: 048
     Dates: start: 20060415, end: 20060802

REACTIONS (1)
  - DRUG SCREEN FALSE POSITIVE [None]
